FAERS Safety Report 16207676 (Version 6)
Quarter: 2019Q4

REPORT INFORMATION
  Report Type: Spontaneous
  Country: JP (occurrence: JP)
  Receive Date: 20190417
  Receipt Date: 20191101
  Transmission Date: 20200122
  Serious: Yes (Hospitalization, Congenital Anomaly)
  Sender: FDA-Public Use
  Company Number: JP-ASTELLAS-2019JP006732

PATIENT
  Age: 0 Day
  Sex: Male

DRUGS (8)
  1. PREDNISOLONE. [Suspect]
     Active Substance: PREDNISOLONE
     Indication: FOETAL EXPOSURE DURING PREGNANCY
     Dosage: UNK UNK, UNKNOWN FREQ.
     Route: 064
     Dates: start: 20190111, end: 20190407
  2. CIMZIA [Suspect]
     Active Substance: CERTOLIZUMAB PEGOL
     Route: 064
     Dates: end: 20190407
  3. PREDNISOLONE. [Suspect]
     Active Substance: PREDNISOLONE
     Indication: EXPOSURE VIA BREAST MILK
     Dosage: UNK UNK, UNKNOWN FREQ.
     Route: 063
     Dates: start: 20190408
  4. CIMZIA [Suspect]
     Active Substance: CERTOLIZUMAB PEGOL
     Indication: FOETAL EXPOSURE DURING PREGNANCY
     Route: 064
     Dates: start: 20190318, end: 20190401
  5. CIMZIA [Suspect]
     Active Substance: CERTOLIZUMAB PEGOL
     Route: 064
     Dates: start: 20190723
  6. PROGRAF [Suspect]
     Active Substance: TACROLIMUS
     Indication: FOETAL EXPOSURE DURING PREGNANCY
     Route: 064
     Dates: end: 20190407
  7. PROGRAF [Suspect]
     Active Substance: TACROLIMUS
     Indication: EXPOSURE VIA BREAST MILK
     Dosage: UNK UNK, UNKNOWN FREQ.
     Route: 063
     Dates: start: 20190408
  8. CIMZIA [Suspect]
     Active Substance: CERTOLIZUMAB PEGOL
     Indication: FOETAL EXPOSURE DURING PREGNANCY
     Route: 064
     Dates: start: 20171002, end: 20171030

REACTIONS (2)
  - Exposure via breast milk [Unknown]
  - Low birth weight baby [Recovered/Resolved]

NARRATIVE: CASE EVENT DATE: 20190408
